FAERS Safety Report 7532591-6 (Version None)
Quarter: 2011Q2

REPORT INFORMATION
  Report Type: 
  Country: None (occurrence: None)
  Receive Date: 20110608
  Receipt Date: 20110602
  Transmission Date: 20111010
  Serious: Yes (Death)
  Sender: FDA-Public Use
  Company Number: PHHY2011GR47914

PATIENT
  Sex: Male
  Weight: 55 kg

DRUGS (5)
  1. CAMPTOSAR [Concomitant]
     Indication: NON-SMALL CELL LUNG CANCER
  2. TEMODAL [Concomitant]
     Indication: METASTASES TO CENTRAL NERVOUS SYSTEM
     Dosage: 180 MG, UNK
     Dates: start: 20110407
  3. ZOMETA [Suspect]
     Dosage: 4 MG, UNK
     Route: 042
     Dates: start: 20100301, end: 20110407
  4. TEMODAL [Concomitant]
     Indication: NON-SMALL CELL LUNG CANCER
  5. CAMPTOSAR [Concomitant]
     Indication: METASTASES TO CENTRAL NERVOUS SYSTEM
     Dosage: 18 MG, UNK
     Dates: start: 20110407

REACTIONS (3)
  - DYSPNOEA [None]
  - MYOCARDIAL INFARCTION [None]
  - TACHYCARDIA [None]
